FAERS Safety Report 21892430 (Version 1)
Quarter: 2023Q1

REPORT INFORMATION
  Report Type: Spontaneous
  Country: IT (occurrence: IT)
  Receive Date: 20230120
  Receipt Date: 20230120
  Transmission Date: 20230418
  Serious: No
  Sender: FDA-Public Use
  Company Number: IT-JAZZ-2023-IT-000747

PATIENT
  Age: 65 Year
  Sex: Female

DRUGS (9)
  1. SODIUM OXYBATE [Suspect]
     Active Substance: SODIUM OXYBATE
     Indication: Narcolepsy
     Dosage: UNK
  2. SODIUM OXYBATE [Suspect]
     Active Substance: SODIUM OXYBATE
     Indication: Cataplexy
  3. SODIUM OXYBATE [Suspect]
     Active Substance: SODIUM OXYBATE
     Indication: Somnolence
  4. MODAFINIL [Suspect]
     Active Substance: MODAFINIL
     Indication: Narcolepsy
     Dosage: UNK
  5. MODAFINIL [Suspect]
     Active Substance: MODAFINIL
     Indication: Cataplexy
  6. MODAFINIL [Suspect]
     Active Substance: MODAFINIL
     Indication: Somnolence
  7. PITOLISANT [Suspect]
     Active Substance: PITOLISANT
     Indication: Narcolepsy
     Dosage: UNK
  8. PITOLISANT [Suspect]
     Active Substance: PITOLISANT
     Indication: Cataplexy
  9. PITOLISANT [Suspect]
     Active Substance: PITOLISANT
     Indication: Somnolence

REACTIONS (1)
  - Drug ineffective [Unknown]
